FAERS Safety Report 6647655-9 (Version None)
Quarter: 2010Q1

REPORT INFORMATION
  Report Type: 
  Country: None (occurrence: None)
  Receive Date: 20100323
  Receipt Date: 20100323
  Transmission Date: 20100710
  Serious: No
  Sender: FDA-Public Use
  Company Number: None

PATIENT
  Age: 40 Year
  Sex: Female
  Weight: 53.5244 kg

DRUGS (3)
  1. OXYCONTIN [Suspect]
     Indication: INTERVERTEBRAL DISC DEGENERATION
     Dosage: OXYCONTIN 40MG 3X/DAY BY MOUTH
     Route: 048
     Dates: start: 20061005
  2. OXYCONTIN [Suspect]
     Indication: MYALGIA
     Dosage: OXYCONTIN 40MG 3X/DAY BY MOUTH
     Route: 048
     Dates: start: 20061005
  3. OXYCONTIN [Suspect]
     Indication: MYOSITIS
     Dosage: OXYCONTIN 40MG 3X/DAY BY MOUTH
     Route: 048
     Dates: start: 20061005

REACTIONS (3)
  - NAUSEA [None]
  - PRODUCT SUBSTITUTION ISSUE [None]
  - VOMITING [None]
